FAERS Safety Report 8832328 (Version 1)
Quarter: 2012Q4

REPORT INFORMATION
  Report Type: 
  Country: US (occurrence: US)
  Receive Date: 20121009
  Receipt Date: 20121009
  Transmission Date: 20130627
  Serious: Yes (Hospitalization, Other)
  Sender: FDA-Public Use
  Company Number: US-ROCHE-GNE267540

PATIENT
  Age: 59 Year
  Sex: Female

DRUGS (1)
  1. RAPTIVA [Suspect]
     Indication: PSORIASIS
     Dosage: 106 mg, 1/Week
     Route: 058
     Dates: end: 200807

REACTIONS (2)
  - Renal failure acute [Recovered/Resolved]
  - Anaemia [Unknown]
